FAERS Safety Report 12994244 (Version 1)
Quarter: 2016Q4

REPORT INFORMATION
  Report Type: Spontaneous
  Country: US (occurrence: US)
  Receive Date: 20161202
  Receipt Date: 20161202
  Transmission Date: 20170207
  Serious: No
  Sender: FDA-Public Use
  Company Number: None

PATIENT
  Age: 40 Year
  Sex: Female
  Weight: 93.15 kg

DRUGS (7)
  1. CYTOMEL [Concomitant]
     Active Substance: LIOTHYRONINE SODIUM
  2. IRON [Concomitant]
     Active Substance: IRON
  3. CHROMIUM [Concomitant]
     Active Substance: CHROMIC CHLORIDE\CHROMIUM
  4. ARMORY THYROID [Concomitant]
  5. NEFAZADONE [Concomitant]
  6. BUPROPION. [Suspect]
     Active Substance: BUPROPION
     Indication: DEPRESSION
     Dosage: ?          QUANTITY:1 TABLET(S);?
     Route: 048
     Dates: start: 20161127, end: 20161202
  7. FISH OIL [Concomitant]
     Active Substance: FISH OIL

REACTIONS (11)
  - Nausea [None]
  - Lethargy [None]
  - Product substitution issue [None]
  - Disturbance in attention [None]
  - Depression [None]
  - Product dosage form issue [None]
  - Dizziness [None]
  - Confusional state [None]
  - Night blindness [None]
  - Anxiety [None]
  - Vision blurred [None]

NARRATIVE: CASE EVENT DATE: 20161128
